FAERS Safety Report 9580111 (Version 3)
Quarter: 2014Q1

REPORT INFORMATION
  Report Type: Spontaneous
  Country: NO (occurrence: None)
  Receive Date: 20130930
  Receipt Date: 20140210
  Transmission Date: 20141002
  Serious: Yes (Disabling)
  Sender: FDA-Public Use
  Company Number: NGX_01946_2013

PATIENT
  Age: 62 Year
  Sex: Female

DRUGS (1)
  1. QUTENZA [Suspect]
     Indication: NEURALGIA
     Dosage: (DF[ A NEW PATCH EVERY THIRD MONTH] )
     Route: 061

REACTIONS (7)
  - Cough [None]
  - Tongue coated [None]
  - Hypersensitivity [None]
  - Hypogeusia [None]
  - Throat irritation [None]
  - Eye pain [None]
  - Tongue discolouration [None]
